FAERS Safety Report 4381787-3 (Version None)
Quarter: 2004Q2

REPORT INFORMATION
  Report Type: 
  Country: None (occurrence: None)
  Receive Date: 20040603
  Receipt Date: 20030605
  Transmission Date: 20050107
  Serious: Yes (Other)
  Sender: FDA-Public Use
  Company Number: 200315183US

PATIENT
  Age: 35 Year
  Sex: Female

DRUGS (13)
  1. ENOXAPARIN SODIUM [Suspect]
     Indication: THROMBOSIS PROPHYLAXIS
     Dosage: 30 MG BID SC
     Dates: start: 20030529, end: 20030530
  2. ENOXAPARIN SODIUM [Suspect]
     Indication: THROMBOSIS PROPHYLAXIS
     Dosage: 30 MG ONCE SC
     Dates: start: 20030603, end: 20030603
  3. FOLIC ACID [Concomitant]
  4. VITAMIN B6 [Concomitant]
  5. ACETYLSALICYLIC ACID SRT [Concomitant]
  6. ASCORBIC ACID [Concomitant]
  7. BIOTON [Concomitant]
  8. TOCOPHEROL CONCENTRATE CAP [Concomitant]
  9. NICOTINIC ACID [Concomitant]
  10. RETINOL [Concomitant]
  11. VITAMIN D [Concomitant]
  12. MINERALS NOS [Concomitant]
  13. VITAMIN B NOS (PRENATAL VITAMINS) [Concomitant]

REACTIONS (7)
  - ANAPHYLACTIC REACTION [None]
  - DYSPNOEA [None]
  - FORMICATION [None]
  - HEART RATE INCREASED [None]
  - HYPOAESTHESIA ORAL [None]
  - OBSTRUCTIVE AIRWAYS DISORDER [None]
  - RESTLESSNESS [None]
